FAERS Safety Report 16289279 (Version 1)
Quarter: 2019Q2

REPORT INFORMATION
  Report Type: Spontaneous
  Country: US (occurrence: US)
  Receive Date: 20190509
  Receipt Date: 20190509
  Transmission Date: 20190711
  Serious: No
  Sender: FDA-Public Use
  Company Number: US-GW PHARMA-201902USGW0428

PATIENT

DRUGS (5)
  1. LITHIUM [LITHIUM ASPARTATE] [Interacting]
     Active Substance: LITHIUM ASPARTATE
     Indication: AFFECTIVE DISORDER
     Dosage: 150 MILLIGRAM, QD
     Route: 048
  2. LATUDA [Interacting]
     Active Substance: LURASIDONE HYDROCHLORIDE
     Indication: AFFECTIVE DISORDER
     Dosage: 20 MG FOR A WHILE
     Route: 048
     Dates: end: 20190121
  3. EPIDIOLEX [Suspect]
     Active Substance: CANNABIDIOL
     Indication: PRODUCT USED FOR UNKNOWN INDICATION
     Dosage: UNK
     Route: 065
  4. SEROQUEL [Interacting]
     Active Substance: QUETIAPINE FUMARATE
     Indication: PRODUCT USED FOR UNKNOWN INDICATION
     Dosage: 15-20 MG FOR 15 YEARS
     Route: 065
  5. DEPAKOTE [Suspect]
     Active Substance: DIVALPROEX SODIUM
     Indication: PRODUCT USED FOR UNKNOWN INDICATION
     Route: 065

REACTIONS (6)
  - Psychomotor hyperactivity [Not Recovered/Not Resolved]
  - Trismus [Not Recovered/Not Resolved]
  - Stress [Unknown]
  - Tardive dyskinesia [Not Recovered/Not Resolved]
  - Drug interaction [Unknown]
  - Insomnia [Not Recovered/Not Resolved]

NARRATIVE: CASE EVENT DATE: 2019
